FAERS Safety Report 15136368 (Version 1)
Quarter: 2018Q3

REPORT INFORMATION
  Report Type: Report from Study
  Country: US (occurrence: US)
  Receive Date: 20180712
  Receipt Date: 20180712
  Transmission Date: 20181010
  Serious: Yes (Other)
  Sender: FDA-Public Use
  Company Number: PHEH2018US023572

PATIENT
  Age: 58 Year
  Sex: Female

DRUGS (1)
  1. COSENTYX [Suspect]
     Active Substance: SECUKINUMAB
     Indication: PSORIASIS
     Dosage: 300 MG, QW
     Route: 058
     Dates: start: 20180509

REACTIONS (8)
  - Wheezing [Unknown]
  - Respiratory tract infection [Unknown]
  - Injection site pain [Unknown]
  - Nausea [Unknown]
  - Injection site bruising [Unknown]
  - Diarrhoea [Unknown]
  - Mood altered [Unknown]
  - Psychiatric symptom [Unknown]

NARRATIVE: CASE EVENT DATE: 20180514
